FAERS Safety Report 11153285 (Version 1)
Quarter: 2015Q2

REPORT INFORMATION
  Report Type: Spontaneous
  Country: US (occurrence: US)
  Receive Date: 20150601
  Receipt Date: 20150601
  Transmission Date: 20150821
  Serious: Yes (Life-Threatening, Hospitalization)
  Sender: FDA-Public Use
  Company Number: PHHY2015US063939

PATIENT
  Age: 25 Year
  Sex: Male

DRUGS (2)
  1. METHYLENE BLUE. [Suspect]
     Active Substance: METHYLENE BLUE
     Indication: PRODUCT USED FOR UNKNOWN INDICATION
     Route: 042
  2. FLUOXETINE [Suspect]
     Active Substance: FLUOXETINE\FLUOXETINE HYDROCHLORIDE
     Indication: PRODUCT USED FOR UNKNOWN INDICATION
     Dosage: 80 MG, QD
     Route: 065

REACTIONS (12)
  - Muscle rigidity [Recovering/Resolving]
  - Sepsis [Recovered/Resolved]
  - Confusional state [Recovering/Resolving]
  - Neuroleptic malignant syndrome [Recovering/Resolving]
  - Appendicitis perforated [Recovered/Resolved]
  - Agitation [Recovering/Resolving]
  - Peritoneal abscess [Recovered/Resolved]
  - Pyrexia [Recovering/Resolving]
  - Hyperthermia malignant [Recovering/Resolving]
  - Serotonin syndrome [Recovering/Resolving]
  - Delirium [Recovering/Resolving]
  - Hyperhidrosis [Recovering/Resolving]
